FAERS Safety Report 8153577-7 (Version None)
Quarter: 2012Q1

REPORT INFORMATION
  Report Type: 
  Country: None (occurrence: None)
  Receive Date: 20120216
  Receipt Date: 20120216
  Transmission Date: 20120608
  Serious: Yes (Hospitalization)
  Sender: FDA-Public Use
  Company Number: None

PATIENT
  Age: 63 Year
  Sex: Male
  Weight: 195.4 kg

DRUGS (1)
  1. VANCOMYCIN [Suspect]
     Dosage: 1000 MG IV
     Route: 042
     Dates: start: 20111014, end: 20111110

REACTIONS (3)
  - FATIGUE [None]
  - TUBULOINTERSTITIAL NEPHRITIS [None]
  - HAEMODIALYSIS [None]
